FAERS Safety Report 9146843 (Version 2)
Quarter: 2013Q2

REPORT INFORMATION
  Report Type: Report from Study
  Country: JP (occurrence: JP)
  Receive Date: 20130307
  Receipt Date: 20130517
  Transmission Date: 20140414
  Serious: Yes (Hospitalization)
  Sender: FDA-Public Use
  Company Number: JP-009507513-1303JPN000227

PATIENT
  Age: 76 Year
  Sex: Male
  Weight: 67 kg

DRUGS (13)
  1. ASMANEX TWISTHALER [Suspect]
     Indication: ASTHMA
     Dosage: 200 MICROGRAM, BID
     Route: 055
     Dates: start: 20111128
  2. ONON [Concomitant]
     Indication: ASTHMA
     Dosage: DIVIDED DOSE FREQUENCY UNKNOWN, 450 MG A DAY
     Route: 048
     Dates: start: 20111128
  3. CLARITIN REDITABS [Concomitant]
     Indication: ASTHMA
     Dosage: DIVIDED DOSE FREQUENCY UNKNOWN, 10 MG A DAY
     Route: 048
     Dates: start: 20111128
  4. TAKEPRON [Concomitant]
     Indication: GASTROOESOPHAGEAL REFLUX DISEASE
     Dosage: DIVIDED DOSE FREQUENCY UNKNOWN, 15MG A DAY
     Route: 048
     Dates: start: 20111213
  5. THEO-DUR [Concomitant]
     Indication: ASTHMA
     Dosage: DIVIDED DOSE FREQUENCY UNKNOWN, 200 MG A DAY
     Route: 048
     Dates: start: 20111213
  6. ROPION [Concomitant]
     Indication: COLON CANCER
     Dosage: DIVIDED DOSE FREQUENCY UNKNOWN, 1 A A DAY
     Route: 042
     Dates: start: 20120330, end: 20120330
  7. MADOPAR [Concomitant]
     Indication: PARKINSON^S DISEASE
     Dosage: DIVIDED DOSE FREQUENCY UNKNOWN,TWO TABS A DAY
     Route: 048
  8. CLARITH [Concomitant]
     Indication: ASTHMA
     Dosage: DIVIDED DOSE FREQUENCY UNKNOWN,400MG A DAY
     Route: 048
     Dates: start: 20111128, end: 20120123
  9. TS-1 [Concomitant]
     Indication: COLON CANCER
     Dosage: DIVIDED DOSE FREQUENCY UNKNOWN,4CAP A DAY
     Route: 048
     Dates: end: 20120413
  10. ARICEPT D [Concomitant]
     Indication: DEMENTIA
     Dosage: DIVIDED DOSE FREQUENCY UNKNOWN,5MG A DAY
     Route: 048
  11. ARTANE [Concomitant]
     Indication: PARKINSON^S DISEASE
     Dosage: DIVIDED DOSE FREQUENCY UNKNOWN,4MG A DAY
     Route: 048
  12. RIVOTRIL [Concomitant]
     Indication: EPILEPSY
     Dosage: DIVIDED DOSE FREQUENCY UNKNOWN, 1 MG A DAY
     Route: 048
  13. PLAVIX [Concomitant]
     Indication: BRAIN STEM INFARCTION
     Dosage: DIVIDED DOSE FREQUENCY UNKNOWN,50MG A DAY
     Route: 048

REACTIONS (2)
  - Lobar pneumonia [Recovering/Resolving]
  - Pneumonia influenzal [Recovering/Resolving]
